FAERS Safety Report 20263733 (Version 1)
Quarter: 2021Q4

REPORT INFORMATION
  Report Type: Spontaneous
  Country: US (occurrence: None)
  Receive Date: 20211230
  Receipt Date: 20211230
  Transmission Date: 20220303
  Serious: Yes (Other)
  Sender: FDA-Public Use
  Company Number: None

PATIENT
  Age: 76 Year
  Sex: Female
  Weight: 81 kg

DRUGS (11)
  1. KISQALI [Suspect]
     Active Substance: RIBOCICLIB
     Indication: Breast cancer metastatic
     Dosage: FREQUENCY : DAILY;?
     Route: 048
  2. ALLEGRA [Concomitant]
     Active Substance: FEXOFENADINE HYDROCHLORIDE
  3. amiodarone 100 mg [Concomitant]
  4. ATENOLOL [Concomitant]
     Active Substance: ATENOLOL
  5. CRESTOR [Concomitant]
     Active Substance: ROSUVASTATIN CALCIUM
  6. ELIQUIS [Concomitant]
     Active Substance: APIXABAN
  7. ENALAPRIL [Concomitant]
     Active Substance: ENALAPRIL
  8. GABAPENTIN [Concomitant]
     Active Substance: GABAPENTIN
  9. iron 325 mg [Concomitant]
  10. LEVOTHYROXINE [Concomitant]
     Active Substance: LEVOTHYROXINE
  11. multivitamin (women once daily) [Concomitant]

REACTIONS (1)
  - Muscle spasms [None]

NARRATIVE: CASE EVENT DATE: 20211230
